FAERS Safety Report 14321444 (Version 1)
Quarter: 2017Q4

REPORT INFORMATION
  Report Type: Spontaneous
  Country: US (occurrence: US)
  Receive Date: 20171223
  Receipt Date: 20171223
  Transmission Date: 20180321
  Serious: No
  Sender: FDA-Public Use
  Company Number: US-AUSTARPHARMA, LLC-2037696

PATIENT
  Age: 73 Year
  Sex: Female
  Weight: 70.46 kg

DRUGS (3)
  1. LEVOTHYROXINE. [Concomitant]
     Active Substance: LEVOTHYROXINE
  2. ALENDRONATE SODIUM. [Suspect]
     Active Substance: ALENDRONATE SODIUM
     Indication: OSTEOPENIA
     Route: 048
  3. NATURE-THROID [Concomitant]
     Active Substance: THYROID, PORCINE

REACTIONS (2)
  - Nausea [None]
  - Arthralgia [None]
